FAERS Safety Report 15738714 (Version 3)
Quarter: 2019Q1

REPORT INFORMATION
  Report Type: Report from Study
  Country: US (occurrence: US)
  Receive Date: 20181219
  Receipt Date: 20190116
  Transmission Date: 20190417
  Serious: Yes (Hospitalization)
  Sender: FDA-Public Use
  Company Number: US-TEVA-2018-US-990152

PATIENT
  Age: 61 Year
  Sex: Female
  Weight: 59.8 kg

DRUGS (17)
  1. MELPHALAN HYDROCHLORIDE. [Suspect]
     Active Substance: MELPHALAN HYDROCHLORIDE
     Indication: PLASMA CELL MYELOMA
     Route: 065
  2. MAGIC MOUTHWASH SWISH [Concomitant]
     Dosage: 60 ML DAILY;
     Dates: start: 20181212
  3. ZOFRAN [Concomitant]
     Active Substance: ONDANSETRON HYDROCHLORIDE
     Indication: NAUSEA
     Dosage: EVERY 8 HOURS AS NEEDED
     Route: 048
  4. ATIVAN [Concomitant]
     Active Substance: LORAZEPAM
     Indication: NAUSEA
     Dosage: 1 TABLET UNDER THE TONGUE OR SWALLOWED EVERY 4-6 HOURS AS NEEDED
  5. URSODIOL. [Concomitant]
     Active Substance: URSODIOL
     Dosage: 600 MILLIGRAM DAILY;
     Route: 048
  6. TREANDA [Suspect]
     Active Substance: BENDAMUSTINE HYDROCHLORIDE
     Indication: PLASMA CELL MYELOMA
     Dosage: 340 MILLIGRAM DAILY;
     Route: 042
     Dates: start: 20181204, end: 20181205
  7. CYTARABINE. [Suspect]
     Active Substance: CYTARABINE
     Indication: PLASMA CELL MYELOMA
     Route: 065
  8. ACYCLOVIR. [Concomitant]
     Active Substance: ACYCLOVIR
     Dosage: 800 MILLIGRAM DAILY;
     Route: 048
  9. VITAMIN B12 + FOLIC ACID [Concomitant]
     Dosage: 1 DOSAGE FORMS DAILY; 1 DF = 500 MCG VITAMIN B12 + 400 MCG FOLIC ACID
     Route: 048
  10. ETOPOSIDE. [Suspect]
     Active Substance: ETOPOSIDE
     Indication: PLASMA CELL MYELOMA
     Route: 065
  11. LEVOFLOXACIN. [Concomitant]
     Active Substance: LEVOFLOXACIN
     Dosage: 500 MILLIGRAM DAILY;
     Route: 048
  12. PEPCID [Concomitant]
     Active Substance: FAMOTIDINE
     Dosage: 40 MILLIGRAM DAILY;
     Route: 048
  13. FOLIC ACID. [Concomitant]
     Active Substance: FOLIC ACID
     Dosage: 800 MICROGRAM DAILY;
     Route: 048
  14. COMPAZINE [Concomitant]
     Active Substance: PROCHLORPERAZINE MALEATE
     Indication: NAUSEA
     Dosage: EVERY 6-8 HOURS AS NEEDED
     Route: 048
  15. TRAMADOL. [Concomitant]
     Active Substance: TRAMADOL
     Indication: PAIN
     Dosage: EVERY 4-6 HOURS AS NEEDED
     Route: 048
  16. BOUDREAUXS (ZINC OXIDE) [Concomitant]
     Active Substance: ZINC OXIDE
     Route: 061
  17. FLUCONAZOLE. [Concomitant]
     Active Substance: FLUCONAZOLE
     Dosage: 400 MILLIGRAM DAILY;
     Route: 048

REACTIONS (1)
  - Mucosal inflammation [Recovered/Resolved]

NARRATIVE: CASE EVENT DATE: 20181213
